FAERS Safety Report 9885315 (Version 3)
Quarter: 2014Q1

REPORT INFORMATION
  Report Type: Spontaneous
  Country: US (occurrence: US)
  Receive Date: 20140210
  Receipt Date: 20140320
  Transmission Date: 20141002
  Serious: No
  Sender: FDA-Public Use
  Company Number: US-PFIZER INC-2014034559

PATIENT
  Age: 76 Year
  Sex: Female

DRUGS (5)
  1. AMLODIPINE BESILATE [Suspect]
     Indication: BLOOD PRESSURE
     Dosage: 10 MG, DAILY
     Route: 048
     Dates: start: 20110613, end: 20110621
  2. ENALAPRIL [Concomitant]
     Dosage: UNK
  3. SIMVASTATIN [Concomitant]
     Dosage: UNK
  4. HYDROCHLOROTHIAZIDE [Concomitant]
     Dosage: UNK
  5. ALPRAZOLAM [Concomitant]
     Dosage: UNK, PRN

REACTIONS (3)
  - Hypersensitivity [Recovered/Resolved]
  - Rash [Recovered/Resolved]
  - Vasculitis [Recovered/Resolved]
